FAERS Safety Report 25642134 (Version 3)
Quarter: 2025Q3

REPORT INFORMATION
  Report Type: Spontaneous
  Country: JP (occurrence: JP)
  Receive Date: 20250805
  Receipt Date: 20250901
  Transmission Date: 20251020
  Serious: Yes (Life-Threatening, Other)
  Sender: ELI LILLY AND COMPANY
  Company Number: JP-ELI_LILLY_AND_COMPANY-JP202508000569

PATIENT
  Age: 65 Year
  Sex: Female

DRUGS (7)
  1. OMVOH [Suspect]
     Active Substance: MIRIKIZUMAB-MRKZ
     Indication: Colitis ulcerative
     Route: 041
     Dates: start: 20250625, end: 20250625
  2. MIYA-BM [Concomitant]
     Active Substance: CLOSTRIDIUM BUTYRICUM SPORES STRAIN M-55
  3. ASACOL [Concomitant]
     Active Substance: MESALAMINE
  4. BIOFERMIN [BIFIDOBACTERIUM BIFIDUM] [Concomitant]
  5. LOPERAMIDE [Concomitant]
     Active Substance: LOPERAMIDE
  6. RABEPRAZOLE [Concomitant]
     Active Substance: RABEPRAZOLE
  7. CALCIUM POLYCARBOPHIL [Concomitant]
     Active Substance: CALCIUM POLYCARBOPHIL

REACTIONS (1)
  - Anaphylactic shock [Recovered/Resolved]

NARRATIVE: CASE EVENT DATE: 20250625
